FAERS Safety Report 11191730 (Version 2)
Quarter: 2015Q2

REPORT INFORMATION
  Report Type: Spontaneous
  Country: BR (occurrence: BR)
  Receive Date: 20150616
  Receipt Date: 20150624
  Transmission Date: 20150821
  Serious: Yes (Hospitalization)
  Sender: FDA-Public Use
  Company Number: BR-ACCORD-031353

PATIENT
  Age: 45 Year
  Sex: Male

DRUGS (2)
  1. TACROLIMUS. [Suspect]
     Active Substance: TACROLIMUS
     Indication: RENAL TRANSPLANT
  2. MYCOPHENOLIC ACID. [Suspect]
     Active Substance: MYCOPHENOLIC ACID
     Indication: RENAL TRANSPLANT

REACTIONS (7)
  - Renal failure [Unknown]
  - Paracoccidioides infection [Unknown]
  - Septic shock [Unknown]
  - Weight decreased [Unknown]
  - Pancytopenia [Unknown]
  - Anaemia [Unknown]
  - Hyponatraemia [Unknown]
